FAERS Safety Report 9563002 (Version 3)
Quarter: 2013Q4

REPORT INFORMATION
  Report Type: Spontaneous
  Country: US (occurrence: US)
  Receive Date: 20130927
  Receipt Date: 20131206
  Transmission Date: 20140711
  Serious: Yes (Hospitalization, Other)
  Sender: FDA-Public Use
  Company Number: US-TEVA-434696USA

PATIENT
  Age: 39 Year
  Sex: Female

DRUGS (1)
  1. PARAGARD 380A [Suspect]
     Indication: CONTRACEPTION
     Route: 015
     Dates: start: 20081124, end: 20130919

REACTIONS (6)
  - Haemorrhage [Unknown]
  - Device breakage [Recovered/Resolved]
  - Embedded device [Recovered/Resolved]
  - Menorrhagia [Unknown]
  - Menorrhagia [Unknown]
  - Device expulsion [Recovered/Resolved]
